FAERS Safety Report 14563128 (Version 35)
Quarter: 2020Q4

REPORT INFORMATION
  Report Type: Spontaneous
  Country: CA (occurrence: CA)
  Receive Date: 20180222
  Receipt Date: 20201226
  Transmission Date: 20210113
  Serious: Yes (Hospitalization, Other)
  Sender: FDA-Public Use
  Company Number: CA-CELLTRION INC.-2017CA011985

PATIENT

DRUGS (49)
  1. INFLECTRA [Suspect]
     Active Substance: INFLIXIMAB-DYYB
     Dosage: 1000 MG, EVERY 6 WEEKS
     Route: 042
     Dates: start: 20180627
  2. INFLECTRA [Suspect]
     Active Substance: INFLIXIMAB-DYYB
     Dosage: 1000 MG, EVERY 6 WEEKS
     Route: 042
     Dates: start: 20190424
  3. INFLECTRA [Suspect]
     Active Substance: INFLIXIMAB-DYYB
     Dosage: 1000 MG, EVERY 6 WEEKS
     Route: 042
     Dates: start: 20190718
  4. INFLECTRA [Suspect]
     Active Substance: INFLIXIMAB-DYYB
     Dosage: 1000 MG, EVERY 6 WEEKS
     Route: 042
     Dates: start: 20190829
  5. INFLECTRA [Suspect]
     Active Substance: INFLIXIMAB-DYYB
     Dosage: 1000 MG, EVERY 6 WEEKS
     Route: 042
     Dates: start: 20200104
  6. INFLECTRA [Suspect]
     Active Substance: INFLIXIMAB-DYYB
     Dosage: 1000 MG, EVERY 6 WEEKS
     Route: 042
     Dates: start: 20201217
  7. VITAMIN D [ERGOCALCIFEROL] [Concomitant]
     Active Substance: ERGOCALCIFEROL
     Dosage: 4000 IU, DAILY
     Route: 065
     Dates: start: 2016
  8. PREDNISONE. [Concomitant]
     Active Substance: PREDNISONE
     Dosage: 70 MG, DAILY
     Dates: start: 201703
  9. PREDNISONE. [Concomitant]
     Active Substance: PREDNISONE
     Dosage: 60 MG, DAILY
     Route: 065
     Dates: start: 20170720
  10. INFLECTRA [Suspect]
     Active Substance: INFLIXIMAB-DYYB
     Dosage: 1000 MG, EVERY 6 WEEKS
     Route: 042
     Dates: start: 20200521, end: 20200521
  11. INFLECTRA [Suspect]
     Active Substance: INFLIXIMAB-DYYB
     Dosage: 1000 MG, EVERY 6 WEEKS
     Route: 042
     Dates: start: 20200811, end: 20200811
  12. DESLORATADINE. [Concomitant]
     Active Substance: DESLORATADINE
     Indication: HYPERSENSITIVITY
     Dosage: 5 MG, DAILY
     Route: 065
     Dates: start: 2007
  13. INFLECTRA [Suspect]
     Active Substance: INFLIXIMAB-DYYB
     Dosage: 1000 MG, EVERY 6 WEEKS
     Route: 042
     Dates: start: 20191121
  14. INFLECTRA [Suspect]
     Active Substance: INFLIXIMAB-DYYB
     Dosage: 1000 MG, EVERY 6 WEEKS
     Route: 042
     Dates: start: 20200923
  15. INFLECTRA [Suspect]
     Active Substance: INFLIXIMAB-DYYB
     Dosage: 1000 MG, EVERY 6 WEEKS
     Route: 042
     Dates: start: 20180105
  16. INFLECTRA [Suspect]
     Active Substance: INFLIXIMAB-DYYB
     Dosage: 1000 MG, EVERY 6 WEEKS
     Route: 042
     Dates: start: 20180215
  17. INFLECTRA [Suspect]
     Active Substance: INFLIXIMAB-DYYB
     Dosage: 1000 MG, EVERY 6 WEEKS
     Route: 042
     Dates: start: 20180510
  18. INFLECTRA [Suspect]
     Active Substance: INFLIXIMAB-DYYB
     Dosage: 1000 MG, EVERY 6 WEEKS
     Route: 042
     Dates: start: 20180810
  19. INFLECTRA [Suspect]
     Active Substance: INFLIXIMAB-DYYB
     Dosage: 1000 MG, EVERY 6 WEEKS
     Route: 042
     Dates: start: 20180920
  20. BUPROPION. [Concomitant]
     Active Substance: BUPROPION
     Dosage: 300 MG, DAILY
     Route: 065
     Dates: start: 201704
  21. INFLECTRA [Suspect]
     Active Substance: INFLIXIMAB-DYYB
     Dosage: 1000 MG, EVERY 6 WEEKS
     Route: 042
     Dates: start: 20181108
  22. INFLECTRA [Suspect]
     Active Substance: INFLIXIMAB-DYYB
     Dosage: 1000 MG, EVERY 6 WEEKS
     Route: 042
     Dates: start: 20200521, end: 20200521
  23. INFLECTRA [Suspect]
     Active Substance: INFLIXIMAB-DYYB
     Dosage: 1000 MG, EVERY 6 WEEKS
     Route: 042
     Dates: start: 20200923
  24. INFLECTRA [Suspect]
     Active Substance: INFLIXIMAB-DYYB
     Dosage: 1000 MG, EVERY 6 WEEKS
     Route: 042
     Dates: start: 20201105
  25. VITAMIN B12 [Concomitant]
     Active Substance: CYANOCOBALAMIN
     Dosage: 2000 MG, DAILY
     Route: 065
     Dates: start: 2013
  26. DESLORATADINE. [Concomitant]
     Active Substance: DESLORATADINE
     Indication: ALLERGY TO ANIMAL
     Dosage: UNK
  27. PREVACID [Concomitant]
     Active Substance: LANSOPRAZOLE
     Dosage: 30 MG, ALTERNATE DAY (EVERY OTHER DAY)
     Route: 065
     Dates: start: 2013
  28. FOLIC ACID. [Concomitant]
     Active Substance: FOLIC ACID
     Dosage: 5 MG, DAILY (EXCEPT MTX DAYS)
     Route: 065
     Dates: start: 20170717
  29. INFLECTRA [Suspect]
     Active Substance: INFLIXIMAB-DYYB
     Dosage: 1000 MG, EVERY 6 WEEKS
     Route: 042
     Dates: start: 20180510
  30. INFLECTRA [Suspect]
     Active Substance: INFLIXIMAB-DYYB
     Dosage: 1000 MG, EVERY 6 WEEKS
     Route: 042
     Dates: start: 20181220
  31. INFLECTRA [Suspect]
     Active Substance: INFLIXIMAB-DYYB
     Dosage: 1000 MG, EVERY 6 WEEKS
     Route: 042
     Dates: start: 20200326
  32. INFLECTRA [Suspect]
     Active Substance: INFLIXIMAB-DYYB
     Dosage: 1000 MG, EVERY 6 WEEKS
     Route: 042
     Dates: start: 20200923
  33. METHOTREXATE. [Concomitant]
     Active Substance: METHOTREXATE
     Dosage: 15 MG, WEEKLY
     Route: 065
     Dates: start: 20170717
  34. GLUCOSAMINE + CHONDROITIN [CHONDROITIN SULFATE, GLUCOSAMINE SULFATE] [Concomitant]
     Dosage: 1 DF (TABLET), 2X/DAY
     Route: 065
     Dates: start: 201704
  35. INFLECTRA [Suspect]
     Active Substance: INFLIXIMAB-DYYB
     Dosage: 1000 MG EVERY 6 WEEKS
     Route: 042
     Dates: start: 20180329
  36. INFLECTRA [Suspect]
     Active Substance: INFLIXIMAB-DYYB
     Dosage: 1000 MG, EVERY 6 WEEKS
     Route: 042
     Dates: start: 20181220
  37. INFLECTRA [Suspect]
     Active Substance: INFLIXIMAB-DYYB
     Dosage: 1000 MG, EVERY 6 WEEKS
     Route: 042
     Dates: start: 20190131
  38. INFLECTRA [Suspect]
     Active Substance: INFLIXIMAB-DYYB
     Dosage: 1000 MG, EVERY 6 WEEKS
     Route: 042
     Dates: start: 20190311
  39. INFLECTRA [Suspect]
     Active Substance: INFLIXIMAB-DYYB
     Dosage: 1000 MG, EVERY 6 WEEKS
     Route: 042
     Dates: start: 20190311
  40. INFLECTRA [Suspect]
     Active Substance: INFLIXIMAB-DYYB
     Dosage: 1000 MG, EVERY 6 WEEKS
     Route: 042
     Dates: start: 20190606
  41. INFLECTRA [Suspect]
     Active Substance: INFLIXIMAB-DYYB
     Dosage: 1000 MG, EVERY 6 WEEKS
     Route: 042
     Dates: start: 20191010
  42. INFLECTRA [Suspect]
     Active Substance: INFLIXIMAB-DYYB
     Dosage: 1000 MG, EVERY 6 WEEKS
     Route: 042
     Dates: start: 20191121
  43. INFLECTRA [Suspect]
     Active Substance: INFLIXIMAB-DYYB
     Dosage: 1000 MG, EVERY 6 WEEKS
     Route: 042
     Dates: start: 20200213
  44. INFLECTRA [Suspect]
     Active Substance: INFLIXIMAB-DYYB
     Dosage: 1000 MG, EVERY 6 WEEKS
     Route: 042
     Dates: start: 20201217
  45. INFLECTRA [Suspect]
     Active Substance: INFLIXIMAB-DYYB
     Indication: CROHN^S DISEASE
     Dosage: 790 MG, (5 MG/KG) AT 0, 2 , 6 THEN EVERY 8 WEEKS
     Route: 042
     Dates: start: 20170816, end: 20171124
  46. INFLECTRA [Suspect]
     Active Substance: INFLIXIMAB-DYYB
     Dosage: 1000 MG, EVERY 6 WEEKS
     Route: 042
     Dates: start: 20180215
  47. INFLECTRA [Suspect]
     Active Substance: INFLIXIMAB-DYYB
     Dosage: 1000 MG, EVERY 6 WEEKS
     Route: 042
     Dates: start: 20191121
  48. INFLECTRA [Suspect]
     Active Substance: INFLIXIMAB-DYYB
     Dosage: 1000 MG, EVERY 6 WEEKS
     Route: 042
     Dates: start: 20200326
  49. INFLECTRA [Suspect]
     Active Substance: INFLIXIMAB-DYYB
     Dosage: 1000 MG, EVERY 6 WEEKS
     Route: 042
     Dates: start: 20201217

REACTIONS (23)
  - White blood cell count increased [Unknown]
  - Ear discomfort [Unknown]
  - Condition aggravated [Not Recovered/Not Resolved]
  - Adrenal insufficiency [Unknown]
  - Oral herpes [Not Recovered/Not Resolved]
  - Lymphadenopathy [Unknown]
  - Heart rate irregular [Unknown]
  - Aphthous ulcer [Unknown]
  - Drug level below therapeutic [Not Recovered/Not Resolved]
  - Weight decreased [Unknown]
  - Oropharyngeal pain [Unknown]
  - Arthralgia [Unknown]
  - Tooth abscess [Recovered/Resolved]
  - Decreased appetite [Unknown]
  - Pyrexia [Unknown]
  - Rhinorrhoea [Unknown]
  - Off label use [Not Recovered/Not Resolved]
  - Malaise [Unknown]
  - Headache [Unknown]
  - Off label use [Unknown]
  - Nausea [Recovered/Resolved]
  - Impaired healing [Unknown]
  - Intentional product use issue [Unknown]

NARRATIVE: CASE EVENT DATE: 201708
